FAERS Safety Report 8312542-7 (Version None)
Quarter: 2012Q2

REPORT INFORMATION
  Report Type: 
  Country: None (occurrence: None)
  Receive Date: 20120425
  Receipt Date: 20120421
  Transmission Date: 20120825
  Serious: Yes (Other)
  Sender: FDA-Public Use
  Company Number: PHHY2012BR034321

PATIENT
  Age: 8 Year
  Sex: Male

DRUGS (4)
  1. STREPTOMYCIN [Suspect]
     Indication: TUBERCULOSIS
  2. ETHAMBUTOL HYDROCHLORIDE [Suspect]
     Indication: TUBERCULOSIS
  3. RIFAMPICIN [Suspect]
     Indication: TUBERCULOSIS
  4. PYRAZINAMIDE [Suspect]
     Indication: TUBERCULOSIS

REACTIONS (7)
  - TUBERCULOMA OF CENTRAL NERVOUS SYSTEM [None]
  - HEMIPARESIS [None]
  - CONDITION AGGRAVATED [None]
  - VOMITING [None]
  - PYREXIA [None]
  - BRAIN OEDEMA [None]
  - HEADACHE [None]
